FAERS Safety Report 9149460 (Version 1)
Quarter: 2013Q1

REPORT INFORMATION
  Report Type: Spontaneous
  Country: US (occurrence: US)
  Receive Date: 20130308
  Receipt Date: 20130308
  Transmission Date: 20140127
  Serious: No
  Sender: FDA-Public Use
  Company Number: US-ENDO PHARMACEUTICALS INC.-OPCR20120354

PATIENT
  Sex: Female
  Weight: 63.56 kg

DRUGS (2)
  1. OPANA ER [Suspect]
     Indication: NERVE INJURY
     Route: 048
     Dates: start: 20120401, end: 20120407
  2. OPANA ER [Concomitant]
     Indication: NERVE INJURY
     Dosage: 40 MG
     Route: 048
     Dates: end: 20120401

REACTIONS (6)
  - Drooling [Unknown]
  - Pruritus [Unknown]
  - Swelling [Unknown]
  - Abdominal pain [Unknown]
  - Somnolence [Unknown]
  - Drug effect decreased [Unknown]
